FAERS Safety Report 12746119 (Version 1)
Quarter: 2016Q3

REPORT INFORMATION
  Report Type: Spontaneous
  Country: US (occurrence: US)
  Receive Date: 20160914
  Receipt Date: 20160914
  Transmission Date: 20161109
  Serious: Yes (Disabling)
  Sender: FDA-Public Use
  Company Number: None

PATIENT
  Age: 43 Year
  Sex: Female
  Weight: 67.5 kg

DRUGS (7)
  1. FENTANYL HYDROMORPHONE [Concomitant]
  2. VALIUM [Concomitant]
     Active Substance: DIAZEPAM
  3. ESCITALOPRAM [Suspect]
     Active Substance: ESCITALOPRAM OXALATE
     Indication: DEPRESSION
     Route: 048
  4. TYLENOL [Concomitant]
     Active Substance: ACETAMINOPHEN
  5. LEXAPRO [Concomitant]
     Active Substance: ESCITALOPRAM OXALATE
  6. ADVIL [Concomitant]
     Active Substance: IBUPROFEN
  7. ESCITALOPRAM [Suspect]
     Active Substance: ESCITALOPRAM OXALATE
     Indication: DEPRESSION
     Route: 048
     Dates: start: 20160826, end: 20160912

REACTIONS (4)
  - Lactose intolerance [None]
  - Reaction to drug excipients [None]
  - Malaise [None]
  - Bedridden [None]

NARRATIVE: CASE EVENT DATE: 20160321
